FAERS Safety Report 7301566-4 (Version None)
Quarter: 2011Q1

REPORT INFORMATION
  Report Type: 
  Country: None (occurrence: None)
  Receive Date: 20110218
  Receipt Date: 20110215
  Transmission Date: 20110831
  Serious: Yes (Other)
  Sender: FDA-Public Use
  Company Number: US-PFIZER INC-2010005834

PATIENT
  Sex: Female

DRUGS (6)
  1. EFFEXOR XR [Concomitant]
     Indication: MAJOR DEPRESSION
     Dosage: 100 MG, 2X/DAY
  2. LYRICA [Suspect]
     Indication: FIBROMYALGIA
     Dosage: 75 MG, 2X/DAY
     Dates: start: 20090113
  3. LYRICA [Suspect]
     Indication: INTERVERTEBRAL DISC DEGENERATION
  4. TOPAMAX [Concomitant]
     Indication: MAJOR DEPRESSION
     Dosage: 25 MG, UNK
  5. LYRICA [Suspect]
     Indication: PAIN
  6. TRAZODONE [Concomitant]
     Indication: MAJOR DEPRESSION
     Dosage: UNK
     Dates: start: 20100226

REACTIONS (5)
  - WITHDRAWAL SYNDROME [None]
  - VISION BLURRED [None]
  - SUICIDAL IDEATION [None]
  - DIPLOPIA [None]
  - EYE SWELLING [None]
